FAERS Safety Report 25754908 (Version 2)
Quarter: 2025Q4

REPORT INFORMATION
  Report Type: Spontaneous
  Country: EU (occurrence: EU)
  Receive Date: 20250903
  Receipt Date: 20251211
  Transmission Date: 20260118
  Serious: Yes (Other)
  Sender: RANBAXY
  Company Number: EU-SUN PHARMACEUTICAL INDUSTRIES INC-2025RR-524454

PATIENT
  Age: 77 Year
  Sex: Female

DRUGS (5)
  1. PEMETREXED [Suspect]
     Active Substance: PEMETREXED
     Indication: Lung adenocarcinoma
     Dosage: 500 MILLIGRAM/SQ. METER
     Route: 042
  2. CARBOPLATIN [Suspect]
     Active Substance: CARBOPLATIN
     Indication: Lung adenocarcinoma
     Dosage: AUC 5 ON DAY 1
     Route: 042
  3. CISPLATIN [Suspect]
     Active Substance: CISPLATIN
     Indication: Lung adenocarcinoma
     Dosage: 80 MILLIGRAM/SQ. METER ON DAY 1 OF THREE 28-DAY CYCLES, ON DAY 1
     Route: 042
  4. VINORELBINE [Suspect]
     Active Substance: VINORELBINE TARTRATE
     Indication: Lung adenocarcinoma
     Dosage: 30 MILLIGRAM/SQ. METER ON DAYS 1 AND 8
     Route: 042
  5. PEMBROLIZUMAB [Suspect]
     Active Substance: PEMBROLIZUMAB
     Indication: Lung adenocarcinoma
     Dosage: 200 MILLIGRAM, ON DAY 1 OF MAINTENANCE THERAPY (21-DAY CYCLES)
     Route: 042

REACTIONS (4)
  - Disease progression [Recovering/Resolving]
  - Therapeutic product effect incomplete [Unknown]
  - Anaemia [Unknown]
  - Infection [Unknown]
